FAERS Safety Report 20682543 (Version 2)
Quarter: 2022Q2

REPORT INFORMATION
  Report Type: Report from Study
  Country: MX (occurrence: MX)
  Receive Date: 20220407
  Receipt Date: 20220518
  Transmission Date: 20220720
  Serious: Yes (Other)
  Sender: FDA-Public Use
  Company Number: MX-NOVARTISPH-NVSC2022MX078994

PATIENT
  Sex: Female
  Weight: 73 kg

DRUGS (5)
  1. EXFORGE [Suspect]
     Active Substance: AMLODIPINE BESYLATE\VALSARTAN
     Indication: Hypertension
     Dosage: 1 DOSAGE FORM, QD
     Route: 048
     Dates: start: 202109
  2. JANUVIA [Concomitant]
     Active Substance: SITAGLIPTIN PHOSPHATE
     Indication: Diabetes mellitus
     Dosage: 1 DOSAGE FORM, BID, IN THE MORNING AND IN THE AFTERNOON
     Route: 048
     Dates: start: 202109
  3. PREGABALIN [Concomitant]
     Active Substance: PREGABALIN
     Indication: Diabetes mellitus
     Dosage: 1 DOSAGE FORM, QD, AT NIGHT
     Route: 048
     Dates: start: 202109
  4. HUMALOG [Concomitant]
     Active Substance: INSULIN LISPRO
     Indication: Diabetes mellitus
     Dosage: UNK (10 IU/ 15 IU), DURING BREAKFAST /DURING THE MEAL
     Route: 059
     Dates: start: 202109
  5. GLIMEPIRIDE [Concomitant]
     Active Substance: GLIMEPIRIDE
     Indication: Diabetes mellitus
     Dosage: 1 DOSAGE FORM, BID, IN THE MORNING AND IN THE AFTERNOON
     Route: 048
     Dates: start: 202109

REACTIONS (5)
  - Eye haemorrhage [Unknown]
  - Vein rupture [Unknown]
  - Fall [Unknown]
  - Eye injury [Unknown]
  - Visual impairment [Unknown]
